FAERS Safety Report 7970545-6 (Version None)
Quarter: 2011Q4

REPORT INFORMATION
  Report Type: 
  Country: None (occurrence: None)
  Receive Date: 20111122
  Receipt Date: 20110830
  Transmission Date: 20120403
  Serious: No
  Sender: FDA-Public Use
  Company Number: PHEH2011US00761

PATIENT
  Age: 43 Year
  Sex: Male

DRUGS (3)
  1. ATURIN [Concomitant]
  2. GILENYA [Suspect]
     Indication: MULTIPLE SCLEROSIS
     Dosage: 0.5 MG, QD, ORAL
     Route: 048
     Dates: start: 20110802
  3. VITAMIN D [Concomitant]

REACTIONS (3)
  - NAUSEA [None]
  - FEELING ABNORMAL [None]
  - PAIN [None]
